FAERS Safety Report 4269678-X (Version None)
Quarter: 2004Q1

REPORT INFORMATION
  Report Type: 
  Country: None (occurrence: None)
  Receive Date: 20040112
  Receipt Date: 20031230
  Transmission Date: 20041129
  Serious: Yes (Other)
  Sender: FDA-Public Use
  Company Number: 2003127420

PATIENT
  Age: 3 Year
  Sex: Male

DRUGS (3)
  1. PEDIACARE (CHLORPHENIRAMINE, DEXTROMETHORPHAN, PSEUDOEPHEDRINE) [Suspect]
     Indication: NASOPHARYNGITIS
     Dosage: 1/4 TEASPOON ONCE, ORAL
     Route: 048
     Dates: start: 20031213, end: 20031213
  2. PARACETAMOL (PARACETAMOL) [Suspect]
     Indication: PYREXIA
     Dosage: ORAL
     Route: 048
     Dates: start: 20031213
  3. IBUPROFEN [Suspect]
     Indication: PYREXIA
     Dosage: ORAL
     Route: 048
     Dates: start: 20031213

REACTIONS (5)
  - CONVULSION [None]
  - EAR INFECTION [None]
  - PNEUMONIA [None]
  - VOMITING [None]
  - WHITE BLOOD CELL COUNT INCREASED [None]
